FAERS Safety Report 7688121-1 (Version None)
Quarter: 2011Q3

REPORT INFORMATION
  Report Type: 
  Country: None (occurrence: None)
  Receive Date: 20110817
  Receipt Date: 20110805
  Transmission Date: 20111222
  Serious: Yes (Other)
  Sender: FDA-Public Use
  Company Number: CA-ELI_LILLY_AND_COMPANY-CA201108001984

PATIENT
  Sex: Female
  Weight: 98.866 kg

DRUGS (6)
  1. ZYPREXA [Suspect]
     Indication: BIPOLAR DISORDER
     Dosage: 5 MG, EACH EVENING
  2. TRILAFON [Concomitant]
  3. ZYPREXA ZYDIS [Suspect]
     Indication: BIPOLAR DISORDER
     Dosage: 5 MG, UNK
  4. RENEDIL [Concomitant]
  5. LASIX [Concomitant]
  6. LITHIUM [Concomitant]

REACTIONS (6)
  - TUBULOINTERSTITIAL NEPHRITIS [None]
  - NEPHROGENIC DIABETES INSIPIDUS [None]
  - HAEMORRHOIDAL HAEMORRHAGE [None]
  - TYPE 2 DIABETES MELLITUS [None]
  - WEIGHT INCREASED [None]
  - RENAL FAILURE CHRONIC [None]
